FAERS Safety Report 9511361 (Version 2)
Quarter: 2013Q3

REPORT INFORMATION
  Report Type: Spontaneous
  Country: GB (occurrence: ES)
  Receive Date: 20130910
  Receipt Date: 20130910
  Transmission Date: 20140515
  Serious: Yes (Hospitalization)
  Sender: FDA-Public Use
  Company Number: ES-ASTRAZENECA-2001AP01474

PATIENT
  Age: 3 Year
  Sex: Male

DRUGS (2)
  1. MEROPENEM [Suspect]
     Indication: MENINGITIS
     Route: 042
  2. MEROPENEM [Suspect]
     Indication: MENINGITIS
     Route: 042

REACTIONS (3)
  - Overdose [Recovered/Resolved with Sequelae]
  - Bone marrow failure [Recovered/Resolved with Sequelae]
  - Hepatic function abnormal [Recovered/Resolved with Sequelae]
